FAERS Safety Report 15111930 (Version 1)
Quarter: 2018Q2

REPORT INFORMATION
  Report Type: Spontaneous
  Country: US (occurrence: US)
  Receive Date: 20180612
  Receipt Date: 20180612
  Transmission Date: 20180711
  Serious: Yes (Death)
  Sender: FDA-Public Use
  Company Number: None

PATIENT
  Age: 73 Month
  Sex: Female

DRUGS (4)
  1. RENVELA [Concomitant]
     Active Substance: SEVELAMER CARBONATE
  2. HYDROCHLOROTHIAZIDE. [Concomitant]
     Active Substance: HYDROCHLOROTHIAZIDE
  3. AVASTIN [Suspect]
     Active Substance: BEVACIZUMAB
     Indication: FAMILIAL RISK FACTOR
     Dosage: ?          OTHER FREQUENCY:INJECT 1.25MG  INT;OTHER ROUTE:INTO THE LEFT EYE EVERY?
  4. LABETALOL HCL [Concomitant]
     Active Substance: LABETALOL HYDROCHLORIDE

REACTIONS (1)
  - Death [None]
